FAERS Safety Report 4646667-4 (Version None)
Quarter: 2005Q2

REPORT INFORMATION
  Report Type: 
  Country: None (occurrence: None)
  Receive Date: 20050422
  Receipt Date: 20050422
  Transmission Date: 20051028
  Serious: No
  Sender: FDA-Public Use
  Company Number: None

PATIENT
  Sex: Male
  Weight: 81 kg

DRUGS (3)
  1. CISPLATIN [Suspect]
     Indication: NON-SMALL CELL LUNG CANCER
     Dosage: 50 MG/M2 IV OVER 60 MIN, DAYS 1,8,29, AND 36
     Route: 042
     Dates: start: 20040921
  2. ETOPOSIDE [Suspect]
     Indication: NON-SMALL CELL LUNG CANCER
     Dosage: 50 MG/M2 IV OVER 60 MIN, DAYS 1-5 AND 29-33
     Route: 042
     Dates: start: 20040921
  3. XRT RADIATION THERAPY [Suspect]
     Indication: NON-SMALL CELL LUNG CANCER
     Dates: start: 20040921

REACTIONS (1)
  - PULMONARY EMBOLISM [None]
